FAERS Safety Report 20883639 (Version 1)
Quarter: 2022Q2

REPORT INFORMATION
  Report Type: Spontaneous
  Country: CN (occurrence: CN)
  Receive Date: 20220527
  Receipt Date: 20220527
  Transmission Date: 20220721
  Serious: Yes (Other)
  Sender: FDA-Public Use
  Company Number: CN-GLAXOSMITHKLINE-CN2022APC083091

PATIENT

DRUGS (5)
  1. BELIMUMAB [Suspect]
     Active Substance: BELIMUMAB
     Indication: Immunosuppression
     Dosage: 120 MG, QD
     Route: 041
     Dates: start: 20211228, end: 20211228
  2. MYCOPHENOLATE MOFETIL [Suspect]
     Active Substance: MYCOPHENOLATE MOFETIL
     Indication: Immunosuppression
     Dosage: 750 MG, BID
     Route: 048
     Dates: start: 20211218, end: 20220218
  3. HYDROXYCHLOROQUINE SULFATE [Suspect]
     Active Substance: HYDROXYCHLOROQUINE SULFATE
     Indication: Immunosuppression
     Dosage: 2.8 G, BID
     Route: 048
     Dates: start: 20211228, end: 20220218
  4. MEDROL [Concomitant]
     Active Substance: METHYLPREDNISOLONE
     Indication: Immunosuppression
     Dosage: 12 MG, QD
     Route: 048
     Dates: start: 20220208, end: 20220218
  5. RABEPRAZOLE SODIUM [Concomitant]
     Active Substance: RABEPRAZOLE SODIUM
     Indication: Hyperchlorhydria
     Dosage: 20 MG, QD
     Route: 048
     Dates: start: 20211228, end: 20220218

REACTIONS (1)
  - Myelosuppression [Recovering/Resolving]

NARRATIVE: CASE EVENT DATE: 20220218
